FAERS Safety Report 10068538 (Version 2)
Quarter: 2014Q3

REPORT INFORMATION
  Report Type: Spontaneous
  Country: US (occurrence: US)
  Receive Date: 20140409
  Receipt Date: 20140721
  Transmission Date: 20150326
  Serious: Yes (Other)
  Sender: FDA-Public Use
  Company Number: US-GLAXOSMITHKLINE-A1068540A

PATIENT
  Age: 44 Year
  Sex: Female

DRUGS (1)
  1. BENLYSTA [Suspect]
     Active Substance: BELIMUMAB
     Indication: SYSTEMIC LUPUS ERYTHEMATOSUS
     Dosage: 120MG CYCLIC
     Route: 065
     Dates: start: 201205, end: 201304

REACTIONS (4)
  - Lumbar puncture [Unknown]
  - Nervous system disorder [Unknown]
  - Systemic lupus erythematosus [Unknown]
  - Cognitive disorder [Unknown]
